FAERS Safety Report 9902923 (Version 1)
Quarter: 2014Q1

REPORT INFORMATION
  Report Type: Spontaneous
  Country: CH (occurrence: CH)
  Receive Date: 20140217
  Receipt Date: 20140217
  Transmission Date: 20141002
  Serious: Yes (Hospitalization)
  Sender: FDA-Public Use
  Company Number: PHHY2014CH017373

PATIENT
  Age: 63 Year
  Sex: Male

DRUGS (13)
  1. CLARITHROMYCIN SANDOZ [Suspect]
     Dosage: 125 MG, BID
     Route: 048
     Dates: start: 201309, end: 201309
  2. VALACICLOVIR SANDOZ [Interacting]
     Dosage: 250 MG, QD
     Route: 048
     Dates: start: 201309, end: 201309
  3. SANDIMMUN NEORAL [Interacting]
     Dosage: 40 MG, BID
     Route: 048
  4. VANCOCIN [Suspect]
     Route: 042
     Dates: start: 20130828, end: 20130906
  5. MEROPENEM LABATEC [Suspect]
     Dosage: 500 MG, QD
     Route: 042
     Dates: start: 20130828, end: 20130909
  6. BACTRIM FORTE [Suspect]
     Indication: PROPHYLAXIS
     Route: 048
     Dates: end: 201309
  7. VALCYTE [Suspect]
     Indication: PROPHYLAXIS
     Dosage: 1 DF, QOD
     Route: 048
     Dates: end: 201309
  8. CELLCEPT [Suspect]
     Dosage: 250 MG, QD
     Route: 048
  9. PREDNISON [Concomitant]
     Dosage: 15 MG, QD
     Route: 048
  10. SPORANOX [Concomitant]
     Dosage: 5 ML, BID
     Route: 048
  11. PEMZEK [Concomitant]
     Dosage: 8 MG, BID
  12. ZANTIC [Concomitant]
     Dosage: 150 MG, BID
     Route: 048
  13. MOTILIUM [Concomitant]
     Dosage: 10 MG, TID
     Route: 048

REACTIONS (4)
  - Anaemia [Recovering/Resolving]
  - Drug level increased [Recovered/Resolved]
  - Drug interaction [Recovered/Resolved]
  - Thrombocytopenia [Recovered/Resolved]
